FAERS Safety Report 9487223 (Version 3)
Quarter: 2014Q1

REPORT INFORMATION
  Report Type: Spontaneous
  Country: NO (occurrence: None)
  Receive Date: 20130823
  Receipt Date: 20140124
  Transmission Date: 20141002
  Serious: Yes (Life-Threatening, Hospitalization)
  Sender: FDA-Public Use
  Company Number: 1858456

PATIENT
  Age: 72 Year
  Sex: 0

DRUGS (39)
  1. DEXMEDETOMIDINE HYDROCHLORIDE [Suspect]
     Indication: SEDATION
     Dosage: 10 MCG/KG/MIN
     Dates: start: 20130428, end: 20130501
  2. DEXMEDETOMIDINE HYDROCHLORIDE [Suspect]
     Dosage: 10 MCG/KG/MIN
     Dates: start: 20130428, end: 20130501
  3. FOSPHENYTOIN SODIUM [Suspect]
     Indication: CONVULSION
     Dosage: 2000 MG BOLUS
     Route: 040
     Dates: start: 20130430
  4. AMINOPHYLLINE [Suspect]
     Indication: ASTHMA
     Dosage: 50-25 MG/H
     Dates: start: 20130516, end: 20130520
  5. FLUMAZENIL [Suspect]
     Indication: REVERSAL OF SEDATION
     Dosage: .5 MG MILLIGRAM(S), 3 DAY
     Dates: start: 20130516, end: 20130516
  6. FENTANYL [Suspect]
     Indication: SEDATION
     Dosage: 250 UG MICROGRAM(S) 1 HOUR, TRANSDERMAL
     Dates: start: 20130426, end: 20130428
  7. DIAZEPAM [Suspect]
     Indication: CONVULSION
     Dosage: 5 MG  MILLIGRAM(S) 5 DAY
     Dates: start: 20130429, end: 20130503
  8. CLONIDINE [Suspect]
     Indication: SEDATION
     Dosage: 60 UG MICROGRAM(S) 1 HOUR
     Dates: start: 20130502, end: 20130509
  9. FLUCONAZOLE [Suspect]
     Indication: FUNGAL INFECTION
     Dosage: 800 MG X 1
     Dates: start: 20130506
  10. MIDAZOLAM [Suspect]
     Indication: SEDATION
     Dosage: 10 MG MILLIGRAM(S) 1 HOUR
     Dates: start: 20130426, end: 20130427
  11. PROPOFOL [Suspect]
     Indication: CONVULSION
     Dosage: 50 MG X APPROXIMATELY 10 PER DAY
     Dates: start: 20130427, end: 20130428
  12. BURINEX [Concomitant]
  13. NALOXONE [Concomitant]
  14. AFIPRAN [Concomitant]
  15. CLONAZEPAM [Concomitant]
  16. RELISTOR [Concomitant]
  17. KEPPRA [Concomitant]
  18. ESIDREX [Concomitant]
  19. LAXOBERAL [Concomitant]
  20. VANCOMYCIN [Concomitant]
  21. BACTRIM [Concomitant]
  22. DALACIN [Concomitant]
  23. MERONEM [Concomitant]
  24. TRIMETHOPRIM SULFAMETHOXAZOLE [Concomitant]
  25. CEFUROXIM [Concomitant]
  26. SINGULAIR [Concomitant]
  27. VENTOLINE [Concomitant]
  28. SOLU-CORTEF [Concomitant]
  29. KELXANE [Concomitant]
  30. FRAGMIN [Concomitant]
  31. KAJOS [Concomitant]
  32. POTASSIUM CHLORIDE [Concomitant]
  33. SPIRIX [Concomitant]
  34. SOMAC [Concomitant]
  35. ACTRAPID [Concomitant]
  36. NOREPINEPHRINE [Concomitant]
  37. DIAMOX [Concomitant]
  38. CETIRIZINE [Concomitant]
  39. ATROVENT [Concomitant]

REACTIONS (7)
  - Brain injury [None]
  - Hypoxia [None]
  - Coma [None]
  - Depressed level of consciousness [None]
  - Drug interaction [None]
  - Asthma [None]
  - Cardiac arrest [None]
